FAERS Safety Report 5638189-9 (Version None)
Quarter: 2008Q1

REPORT INFORMATION
  Report Type: 
  Country: None (occurrence: None)
  Receive Date: 20080221
  Receipt Date: 20080219
  Transmission Date: 20080703
  Serious: Yes (Life-Threatening, Hospitalization)
  Sender: FDA-Public Use
  Company Number: 20084753

PATIENT
  Age: 45 Year
  Sex: Male

DRUGS (1)
  1. LIORESAL [Suspect]
     Indication: MUSCLE SPASTICITY
     Dosage: DAILY, INTRATHECAL
     Route: 037

REACTIONS (13)
  - CARDIOMYOPATHY [None]
  - COMA [None]
  - FATIGUE [None]
  - HYPERHIDROSIS [None]
  - HYPERPYREXIA [None]
  - LABILE BLOOD PRESSURE [None]
  - LIVEDO RETICULARIS [None]
  - MUSCLE RIGIDITY [None]
  - MUSCLE SPASTICITY [None]
  - PRURITUS [None]
  - PYREXIA [None]
  - RESPIRATORY FAILURE [None]
  - TACHYCARDIA [None]
